FAERS Safety Report 8269692-3 (Version None)
Quarter: 2012Q2

REPORT INFORMATION
  Report Type: 
  Country: None (occurrence: None)
  Receive Date: 20120405
  Receipt Date: 20120328
  Transmission Date: 20120825
  Serious: Yes (Other)
  Sender: FDA-Public Use
  Company Number: 201203106

PATIENT
  Age: 76 Year
  Sex: Male

DRUGS (3)
  1. TESTIM [Suspect]
     Indication: BLOOD TESTOSTERONE DECREASED
     Dosage: 50 MG, 1 IN 1 D, TRANSDERMAL
     Route: 062
     Dates: start: 20100101, end: 20110401
  2. PLAVIX [Suspect]
     Indication: ANGIOPLASTY
  3. LIPITOR [Suspect]
     Indication: ANGIOPLASTY

REACTIONS (4)
  - TRANSIENT ISCHAEMIC ATTACK [None]
  - BACK DISORDER [None]
  - CORONARY ARTERY OCCLUSION [None]
  - BLOOD PRESSURE INCREASED [None]
